FAERS Safety Report 6311367-1 (Version None)
Quarter: 2009Q3

REPORT INFORMATION
  Report Type: 
  Country: None (occurrence: None)
  Receive Date: 20090817
  Receipt Date: 20090807
  Transmission Date: 20100115
  Serious: Yes (Other)
  Sender: FDA-Public Use
  Company Number: JP-ELI_LILLY_AND_COMPANY-JP200908001735

PATIENT

DRUGS (3)
  1. ALIMTA [Suspect]
     Indication: LUNG ADENOCARCINOMA
  2. FOLIC ACID [Concomitant]
     Route: 048
     Dates: start: 20090101
  3. VITAMIN B-12 [Concomitant]
     Route: 030
     Dates: start: 20090101

REACTIONS (5)
  - C-REACTIVE PROTEIN INCREASED [None]
  - DISSEMINATED INTRAVASCULAR COAGULATION [None]
  - DYSPHAGIA [None]
  - HEPATIC FUNCTION ABNORMAL [None]
  - PYREXIA [None]
